FAERS Safety Report 14526749 (Version 4)
Quarter: 2018Q2

REPORT INFORMATION
  Report Type: Spontaneous
  Country: US (occurrence: US)
  Receive Date: 20180213
  Receipt Date: 20180625
  Transmission Date: 20180711
  Serious: Yes (Disabling, Other)
  Sender: FDA-Public Use
  Company Number: US-REGENERON PHARMACEUTICALS, INC.-2018-14005

PATIENT

DRUGS (2)
  1. EYLEA [Suspect]
     Active Substance: AFLIBERCEPT
     Indication: NEOVASCULAR AGE-RELATED MACULAR DEGENERATION
     Dosage: 2 MG, Q 6-7 WEEKS; RIGHT EYE
     Route: 031
     Dates: start: 20150610, end: 20150610
  2. EYLEA [Suspect]
     Active Substance: AFLIBERCEPT
     Dosage: 2 MG, Q 6-7 WEEKS; RIGHT EYE
     Route: 042
     Dates: start: 20171220, end: 20171224

REACTIONS (4)
  - Blindness transient [Recovered/Resolved]
  - Vitrectomy [Recovered/Resolved]
  - Wrong technique in product usage process [Unknown]
  - Endophthalmitis [Recovered/Resolved]

NARRATIVE: CASE EVENT DATE: 20171224
